FAERS Safety Report 17446577 (Version 1)
Quarter: 2020Q1

REPORT INFORMATION
  Report Type: Spontaneous
  Country: CN (occurrence: CN)
  Receive Date: 20200221
  Receipt Date: 20200221
  Transmission Date: 20200409
  Serious: Yes (Other)
  Sender: FDA-Public Use
  Company Number: CN-BAXTER-2020BAX003656

PATIENT
  Age: 62 Year
  Sex: Female
  Weight: 61 kg

DRUGS (12)
  1. 0.9% SODIUM CHLORIDE INJECTION [Suspect]
     Active Substance: SODIUM CHLORIDE
     Indication: MEDICATION DILUTION
     Dosage: 1-2 CHEMOTHERAPY; ENDOXAN + NS
     Route: 042
  2. 0.9% SODIUM CHLORIDE INJECTION [Suspect]
     Active Substance: SODIUM CHLORIDE
     Dosage: 1-2 CHEMOTHERAPY; FAMAXIN+ NS
     Route: 041
  3. 0.9% SODIUM CHLORIDE INJECTION [Suspect]
     Active Substance: SODIUM CHLORIDE
     Dosage: DOSE RE-INTRODUCED; FAMAXIN+ NS
     Route: 041
  4. FAMAXIN (EPIRUBICIN HYDROCHLORIDE) [Suspect]
     Active Substance: EPIRUBICIN HYDROCHLORIDE
     Dosage: THIRD CHEMOTHERAPY; FAMAXIN 130MG + NS 100 ML
     Route: 041
     Dates: start: 20191202, end: 20191202
  5. ENDOXAN [Suspect]
     Active Substance: CYCLOPHOSPHAMIDE
     Dosage: THIRD CHEMOTHERAPY; ENDOXAN 900MG + NS 45 ML
     Route: 042
     Dates: start: 20191202, end: 20191202
  6. ENDOXAN [Suspect]
     Active Substance: CYCLOPHOSPHAMIDE
     Dosage: DOSE RE-INTRODUCED; ENDOXAN + NS
     Route: 042
  7. 0.9% SODIUM CHLORIDE INJECTION [Suspect]
     Active Substance: SODIUM CHLORIDE
     Dosage: THIRD CHEMOTHERAPY; ENDOXAN 900MG + NS 45 ML
     Route: 042
     Dates: start: 20191202, end: 20191202
  8. 0.9% SODIUM CHLORIDE INJECTION [Suspect]
     Active Substance: SODIUM CHLORIDE
     Dosage: DOSE RE-INTRODUCED; ENDOXAN + NS
     Route: 042
  9. FAMAXIN (EPIRUBICIN HYDROCHLORIDE) [Suspect]
     Active Substance: EPIRUBICIN HYDROCHLORIDE
     Indication: BREAST CANCER FEMALE
     Dosage: 1-2 CYCLES OF CHEMOTHERAPY; FAMAXIN + NS
     Route: 041
  10. FAMAXIN (EPIRUBICIN HYDROCHLORIDE) [Suspect]
     Active Substance: EPIRUBICIN HYDROCHLORIDE
     Dosage: DOSE RE-INTRODUCED; FAMAXIN + NS
     Route: 041
  11. ENDOXAN [Suspect]
     Active Substance: CYCLOPHOSPHAMIDE
     Indication: BREAST CANCER FEMALE
     Dosage: 1-2 CYCLES OF CHEMOTHERAPY; ENDOXAN + NS (NORMAL SALINE)
     Route: 042
  12. 0.9% SODIUM CHLORIDE INJECTION [Suspect]
     Active Substance: SODIUM CHLORIDE
     Dosage: THIRD CHEMOTHERAPY; FAMAXIN 130 MG + NS 100 ML
     Route: 041
     Dates: start: 20191202, end: 20191202

REACTIONS (2)
  - White blood cell count decreased [Recovering/Resolving]
  - Agranulocytosis [Recovering/Resolving]

NARRATIVE: CASE EVENT DATE: 20191212
